FAERS Safety Report 9798757 (Version 1)
Quarter: 2014Q1

REPORT INFORMATION
  Report Type: Spontaneous
  Country: US (occurrence: US)
  Receive Date: 20140106
  Receipt Date: 20140106
  Transmission Date: 20141002
  Serious: No
  Sender: FDA-Public Use
  Company Number: US-GILEAD-2010-0030054

PATIENT
  Age: 45 Year
  Sex: Female

DRUGS (7)
  1. LETAIRIS [Suspect]
     Indication: PULMONARY ARTERIAL HYPERTENSION
     Route: 048
     Dates: start: 20100616
  2. LASIX [Concomitant]
  3. LISINOPRIL [Concomitant]
  4. MVI [Concomitant]
  5. ASPIRIN [Concomitant]
  6. CALCIUM [Concomitant]
  7. NORVASC [Concomitant]

REACTIONS (1)
  - Local swelling [Not Recovered/Not Resolved]
